FAERS Safety Report 5427775-7 (Version None)
Quarter: 2007Q3

REPORT INFORMATION
  Report Type: 
  Country: None (occurrence: None)
  Receive Date: 20070828
  Receipt Date: 20070821
  Transmission Date: 20080115
  Serious: Yes (Hospitalization)
  Sender: FDA-Public Use
  Company Number: US-ELI_LILLY_AND_COMPANY-US200708004436

PATIENT
  Age: 52 Year
  Sex: Female

DRUGS (2)
  1. HUMULIN 70/30 [Suspect]
     Dates: start: 20060101
  2. HUMULIN 70/30 [Suspect]

REACTIONS (2)
  - INJECTION SITE PAIN [None]
  - LIVER DISORDER [None]
